FAERS Safety Report 25680575 (Version 1)
Quarter: 2025Q3

REPORT INFORMATION
  Report Type: Spontaneous
  Country: US (occurrence: US)
  Receive Date: 20250814
  Receipt Date: 20250814
  Transmission Date: 20251021
  Serious: Yes (Other)
  Sender: BOEHRINGER INGELHEIM
  Company Number: US-Komodo Health-a23aa000009W8EzAAK

PATIENT
  Sex: Male

DRUGS (1)
  1. OFEV [Suspect]
     Active Substance: NINTEDANIB
     Indication: Idiopathic pulmonary fibrosis
     Dates: start: 2021

REACTIONS (1)
  - Idiopathic pulmonary fibrosis [Not Recovered/Not Resolved]
